FAERS Safety Report 8406855-8 (Version None)
Quarter: 2012Q2

REPORT INFORMATION
  Report Type: 
  Country: None (occurrence: None)
  Receive Date: 20120604
  Receipt Date: 20120530
  Transmission Date: 20120825
  Serious: Yes (Hospitalization)
  Sender: FDA-Public Use
  Company Number: US-PFIZER INC-2012131201

PATIENT
  Sex: Male
  Weight: 95 kg

DRUGS (2)
  1. LYRICA [Suspect]
     Dosage: 50 MG, 3X/DAY
     Route: 048
  2. LYRICA [Suspect]
     Indication: DIABETIC NEUROPATHY
     Dosage: 2X300MG CAPSULE, 2X/DAY
     Route: 048

REACTIONS (1)
  - RENAL DISORDER [None]
